FAERS Safety Report 23533837 (Version 1)
Quarter: 2024Q1

REPORT INFORMATION
  Report Type: Spontaneous
  Country: US (occurrence: US)
  Receive Date: 20240216
  Receipt Date: 20240216
  Transmission Date: 20240410
  Serious: No
  Sender: FDA-Public Use
  Company Number: US-Dermavant-000989

PATIENT
  Age: 43 Year
  Sex: Female

DRUGS (2)
  1. TAPINAROF [Suspect]
     Active Substance: TAPINAROF
     Indication: Psoriasis
     Dates: start: 20230811
  2. Clobetasol 0.5% [Concomitant]

REACTIONS (2)
  - Arthralgia [Unknown]
  - Drug ineffective [Unknown]
